FAERS Safety Report 10363749 (Version 1)
Quarter: 2014Q3

REPORT INFORMATION
  Report Type: Spontaneous
  Country: US (occurrence: None)
  Receive Date: 20140801
  Receipt Date: 20140801
  Transmission Date: 20150326
  Serious: Yes (Death)
  Sender: FDA-Public Use
  Company Number: UNT-2014-004598

PATIENT
  Age: 72 Year
  Sex: Male

DRUGS (3)
  1. TRACLEER [Concomitant]
     Active Substance: BOSENTAN\BOSENTAN MONOHYDRATE
  2. REMODULIN [Suspect]
     Active Substance: TREPROSTINIL
     Indication: PULMONARY ARTERIAL HYPERTENSION
     Route: 041
     Dates: start: 20140603
  3. REVATIO (SILDENAFIL CITRATE) [Concomitant]

REACTIONS (1)
  - Death [None]

NARRATIVE: CASE EVENT DATE: 20140718
